FAERS Safety Report 11761865 (Version 3)
Quarter: 2015Q4

REPORT INFORMATION
  Report Type: Report from Study
  Country: JP (occurrence: JP)
  Receive Date: 20151120
  Receipt Date: 20151230
  Transmission Date: 20160304
  Serious: Yes (Other)
  Sender: FDA-Public Use
  Company Number: JP-UCBSA-2015033713

PATIENT
  Age: 33 Year
  Sex: Female
  Weight: 57 kg

DRUGS (11)
  1. ROTIGOTINE [Suspect]
     Active Substance: ROTIGOTINE
     Dosage: 2 MG, ONCE DAILY (QD)
     Route: 062
     Dates: start: 20150610, end: 20150909
  2. HICEE-L [Concomitant]
     Indication: RESTLESS LEGS SYNDROME
     Dosage: 25 %, UNK
     Dates: start: 20150708, end: 20150918
  3. CLARITHROMYCIN. [Concomitant]
     Active Substance: CLARITHROMYCIN
     Indication: PYREXIA
     Dosage: UNK
     Dates: start: 20150727, end: 2015
  4. GRACEVIT [Suspect]
     Active Substance: SITAFLOXACIN
     Indication: PELVIC INFECTION
     Dosage: UNK
     Route: 048
     Dates: start: 20150821
  5. FERROUS SODIUM CITRATE [Concomitant]
     Active Substance: SODIUM FERROUS CITRATE
     Indication: RESTLESS LEGS SYNDROME
     Dosage: UNK
     Dates: start: 20150708, end: 20150918
  6. CLARITHROMYCIN. [Concomitant]
     Active Substance: CLARITHROMYCIN
     Indication: PELVIC INFECTION
     Dosage: UNK
     Dates: start: 2015, end: 201508
  7. MERISLON [Concomitant]
     Active Substance: BETAHISTINE MESILATE
     Indication: VERTIGO
     Dosage: 12 MG, UNK
     Dates: start: 20150708, end: 20150714
  8. TOLVAPTAN [Concomitant]
     Active Substance: TOLVAPTAN
     Indication: PRODUCT USED FOR UNKNOWN INDICATION
  9. ROTIGOTINE [Suspect]
     Active Substance: ROTIGOTINE
     Indication: RESTLESS LEGS SYNDROME
     Dosage: 1 MG, ONCE DAILY (QD)
     Route: 062
     Dates: start: 20150527, end: 20150609
  10. ROTIGOTINE [Suspect]
     Active Substance: ROTIGOTINE
     Dosage: 2 MG, ONCE DAILY (QD)
     Route: 062
     Dates: start: 20150916, end: 20150918
  11. ADETPHOS [Concomitant]
     Active Substance: ADENOSINE TRIPHOSPHATE
     Indication: VERTIGO
     Dosage: 10 %, UNK
     Dates: start: 20150708, end: 20150714

REACTIONS (8)
  - Arthritis [Recovered/Resolved]
  - Rash [Recovered/Resolved]
  - Vertigo [Recovered/Resolved]
  - Drug-induced liver injury [Recovered/Resolved]
  - Pyrexia [Recovered/Resolved]
  - Abdominal pain [Recovered/Resolved]
  - Pelvic infection [Recovered/Resolved]
  - Malaise [Unknown]

NARRATIVE: CASE EVENT DATE: 20150701
